FAERS Safety Report 12326546 (Version 1)
Quarter: 2016Q2

REPORT INFORMATION
  Report Type: Spontaneous
  Country: US (occurrence: None)
  Receive Date: 20160502
  Receipt Date: 20160502
  Transmission Date: 20160815
  Serious: Yes (Disabling)
  Sender: FDA-Public Use
  Company Number: None

PATIENT
  Age: 55 Year
  Sex: Female
  Weight: 61.24 kg

DRUGS (4)
  1. CHEWABLE PRO-BIOTIC [Concomitant]
  2. TRANSDERM SCOP [Suspect]
     Active Substance: SCOPOLAMINE
     Indication: MOTION SICKNESS
     Dosage: 1 PATCH(ES) 1 PTCH/3 DAYS APPLIED TO A SURFACE, USUALLY THE SKIN
     Route: 061
     Dates: start: 20160410, end: 20160424
  3. CHEWABLE MULTI-VITAMIN [Concomitant]
  4. RESTASIS [Concomitant]
     Active Substance: CYCLOSPORINE

REACTIONS (4)
  - Headache [None]
  - Drug withdrawal syndrome [None]
  - Vertigo [None]
  - Nausea [None]

NARRATIVE: CASE EVENT DATE: 20160425
